FAERS Safety Report 10095550 (Version 3)
Quarter: 2017Q4

REPORT INFORMATION
  Report Type: Spontaneous
  Country: CH (occurrence: CH)
  Receive Date: 20140422
  Receipt Date: 20171115
  Transmission Date: 20180320
  Serious: Yes (Hospitalization, Other)
  Sender: FDA-Public Use
  Company Number: US-ASTRAZENECA-2014SE26841

PATIENT
  Age: 58 Year
  Sex: Male
  Weight: 85 kg

DRUGS (32)
  1. VFEND [Interacting]
     Active Substance: VORICONAZOLE
     Indication: PNEUMONIA FUNGAL
     Route: 048
     Dates: start: 20140225, end: 20140226
  2. TRAMAL [Interacting]
     Active Substance: TRAMADOL
     Dosage: 50-62.5MG, 1-4 TIMES PER DAY
     Route: 065
     Dates: start: 20140221, end: 20140307
  3. AMLODIPINE [Concomitant]
     Active Substance: AMLODIPINE BESYLATE
     Dosage: LONG TERM, 10 MG EVERY DAY
     Route: 048
  4. SERESTA [Suspect]
     Active Substance: OXAZEPAM
     Dosage: 15 MG, LONG TERM
     Route: 048
     Dates: end: 20140305
  5. COPEGUS [Suspect]
     Active Substance: RIBAVIRIN
     Indication: RHINOVIRUS INFECTION
     Dosage: SHORT TERM, 1200 MG , THREE TIMES A DAY
     Route: 048
     Dates: start: 20140226
  6. LYRICA [Suspect]
     Active Substance: PREGABALIN
     Indication: PRODUCT USED FOR UNKNOWN INDICATION
     Dosage: 50 MG, THREE TIMES A DAY,  LONG TERM
     Route: 048
     Dates: end: 20140307
  7. VFEND [Interacting]
     Active Substance: VORICONAZOLE
     Indication: PNEUMONIA FUNGAL
     Route: 048
     Dates: start: 20140227, end: 20140311
  8. ESOMEPRAZOLE [Concomitant]
     Active Substance: ESOMEPRAZOLE
     Dosage: LONG TERM, 40 MG EVERY DAY
     Route: 048
  9. NADIR [Concomitant]
     Indication: PRODUCT USED FOR UNKNOWN INDICATION
  10. SYNAGIS [Suspect]
     Active Substance: PALIVIZUMAB
     Indication: RESPIRATORY SYNCYTIAL VIRUS INFECTION
     Dosage: 600.0MG UNKNOWN
     Route: 030
     Dates: start: 20140308, end: 20140308
  11. TEMESTA (LORAZEPAM) [Suspect]
     Active Substance: LORAZEPAM
     Dosage: 1.0MG UNKNOWN
     Route: 048
     Dates: start: 20140221
  12. PROGRAF [Interacting]
     Active Substance: TACROLIMUS\TACROLIMUS ANHYDROUS
     Indication: PROPHYLAXIS AGAINST TRANSPLANT REJECTION
     Route: 048
     Dates: start: 20140307
  13. PANTOZOL [Concomitant]
     Active Substance: PANTOPRAZOLE SODIUM
     Dosage: LONG TERM, 40 MG , TWO TIMES A DAY
     Route: 048
     Dates: end: 20140307
  14. MERONEM [Suspect]
     Active Substance: MEROPENEM
     Indication: PNEUMONIA
     Dosage: SHORT TERM, 1G THREE TIMES A DAY
     Route: 041
     Dates: start: 20140307
  15. MORPHINE [Suspect]
     Active Substance: MORPHINE
     Dosage: AS NECESSARY
     Route: 041
     Dates: start: 20140307, end: 20140307
  16. TEMESTA (LORAZEPAM) [Suspect]
     Active Substance: LORAZEPAM
     Dosage: 1.0MG UNKNOWN
     Route: 048
     Dates: start: 20140307, end: 20140308
  17. TEMESTA (LORAZEPAM) [Suspect]
     Active Substance: LORAZEPAM
     Dosage: UNKNOWN
     Route: 048
     Dates: end: 20140309
  18. TRAMAL [Interacting]
     Active Substance: TRAMADOL
     Dosage: LONG TERM, 62.5 MG, THREE TIMES A DAY
     Route: 065
  19. COPEGUS [Suspect]
     Active Substance: RIBAVIRIN
     Indication: PNEUMONIA RESPIRATORY SYNCYTIAL VIRAL
     Dosage: SHORT TERM, 1200 MG , THREE TIMES A DAY
     Route: 048
     Dates: start: 20140226
  20. COPEGUS [Suspect]
     Active Substance: RIBAVIRIN
     Indication: PNEUMONIA RESPIRATORY SYNCYTIAL VIRAL
     Dosage: SHORT TERM, 800 MG , THREE TIMES A DAY
     Route: 048
     Dates: start: 20140307
  21. PROGRAF [Interacting]
     Active Substance: TACROLIMUS\TACROLIMUS ANHYDROUS
     Indication: PROPHYLAXIS AGAINST TRANSPLANT REJECTION
     Dosage: LONG TERM, 0.5 MG , TWO TIMES A DAY
     Route: 048
     Dates: end: 20140306
  22. PROGRAF [Interacting]
     Active Substance: TACROLIMUS\TACROLIMUS ANHYDROUS
     Indication: PROPHYLAXIS AGAINST TRANSPLANT REJECTION
     Dosage: NORMALISIED AGAIN
     Route: 048
     Dates: start: 20140309
  23. ASPIRINE [Concomitant]
     Active Substance: ASPIRIN
     Dosage: LONG TERM, 100 MG EVERY DAY
     Route: 048
  24. COPEGUS [Suspect]
     Active Substance: RIBAVIRIN
     Indication: RHINOVIRUS INFECTION
     Dosage: SHORT TERM, 800 MG , THREE TIMES A DAY
     Route: 048
     Dates: start: 20140307
  25. PREDNISONE. [Interacting]
     Active Substance: PREDNISONE
     Dosage: LONG TERM, 5 MG EVERY DAY
     Route: 048
  26. CELLCEPT [Concomitant]
     Active Substance: MYCOPHENOLATE MOFETIL\MYCOPHENOLATE MOFETIL HYDROCHLORIDE
     Dosage: LONG TERM, 1000 MG TWO TIMES A DAY
     Route: 048
     Dates: end: 20140221
  27. JANUMET [Concomitant]
     Active Substance: METFORMIN HYDROCHLORIDE\SITAGLIPTIN PHOSPHATE
     Dosage: LONG TERM, 500 MG TWO TIMES A DAY
     Route: 048
     Dates: end: 20140307
  28. MORPHINE [Suspect]
     Active Substance: MORPHINE
     Dosage: 1MG/H
     Route: 041
     Dates: start: 20140308, end: 20140310
  29. SERESTA [Suspect]
     Active Substance: OXAZEPAM
     Route: 065
     Dates: start: 20140308, end: 20140309
  30. CELLCEPT [Concomitant]
     Active Substance: MYCOPHENOLATE MOFETIL\MYCOPHENOLATE MOFETIL HYDROCHLORIDE
     Route: 048
     Dates: start: 20140228
  31. LISTRIL [Concomitant]
     Active Substance: LISINOPRIL
     Dosage: LONG TERM, 15 MG EVERY DAY
     Route: 048
     Dates: end: 20140307
  32. INSULIN PORCINE [Concomitant]
     Active Substance: INSULIN PORK\INSULIN PURIFIED PORK
     Dosage: ACCORDING TO GLYCEMIA, LONG TERM
     Route: 058

REACTIONS (9)
  - Blood creatinine increased [Unknown]
  - Respiratory failure [Unknown]
  - Confusional state [Recovering/Resolving]
  - Withdrawal syndrome [Recovering/Resolving]
  - Aggression [Recovering/Resolving]
  - Renal impairment [Unknown]
  - Underdose [Recovered/Resolved]
  - Potentiating drug interaction [Unknown]
  - Agitation [Unknown]

NARRATIVE: CASE EVENT DATE: 20140225
